FAERS Safety Report 12552178 (Version 1)
Quarter: 2016Q3

REPORT INFORMATION
  Report Type: Spontaneous
  Country: PT (occurrence: PT)
  Receive Date: 20160713
  Receipt Date: 20160713
  Transmission Date: 20161109
  Serious: Yes (Death, Hospitalization)
  Sender: FDA-Public Use
  Company Number: PT-ACTAVIS-2016-15251

PATIENT
  Age: 53 Year
  Sex: Female
  Weight: 66 kg

DRUGS (6)
  1. PERJETA [Suspect]
     Active Substance: PERTUZUMAB
     Indication: BREAST CANCER
     Dosage: 840 MG, CYCLICAL (EVERY 21 DAYS)
     Route: 040
     Dates: start: 20160505, end: 20160505
  2. SYMBICORT [Concomitant]
     Active Substance: BUDESONIDE\FORMOTEROL FUMARATE DIHYDRATE
     Indication: CHRONIC OBSTRUCTIVE PULMONARY DISEASE
     Dosage: 1 DF, BID
     Route: 055
  3. DOCETAXEL. [Suspect]
     Active Substance: DOCETAXEL
     Indication: BREAST CANCER
     Dosage: 132 MG, CYCLICAL (EVERY 21 DAYS)
     Route: 040
     Dates: start: 20160506, end: 20160506
  4. AAS [Concomitant]
     Active Substance: ASPIRIN
     Indication: THROMBOCYTOSIS
     Dosage: 150 MG, DAILY
     Route: 048
     Dates: start: 201511
  5. HERCEPTIN [Suspect]
     Active Substance: TRASTUZUMAB
     Indication: BREAST CANCER
     Dosage: 528 MG, CYCLICAL (EVERY 21 DAYS)
     Route: 040
     Dates: start: 20160506, end: 20160506
  6. SALBUTAMOL [Concomitant]
     Active Substance: ALBUTEROL
     Indication: CHRONIC OBSTRUCTIVE PULMONARY DISEASE
     Dosage: 1 DF, PRN
     Route: 055

REACTIONS (21)
  - Respiratory failure [Fatal]
  - Pneumocystis jirovecii pneumonia [Fatal]
  - Blood creatinine increased [Fatal]
  - C-reactive protein increased [Fatal]
  - Neutrophil count increased [Fatal]
  - Acute kidney injury [Fatal]
  - Hypochromic anaemia [Fatal]
  - Sepsis [Fatal]
  - Tachycardia [Fatal]
  - Blood uric acid increased [Fatal]
  - Renal function test abnormal [Fatal]
  - Pyrexia [Fatal]
  - Blood urea increased [Fatal]
  - Metabolic acidosis [Fatal]
  - Multiple organ dysfunction syndrome [Fatal]
  - Oliguria [Fatal]
  - Tachypnoea [Fatal]
  - Leukocytosis [Fatal]
  - Anaemia [Fatal]
  - Infection [Fatal]
  - Microcytic anaemia [Fatal]

NARRATIVE: CASE EVENT DATE: 20160524
